FAERS Safety Report 18112048 (Version 6)
Quarter: 2021Q1

REPORT INFORMATION
  Report Type: Spontaneous
  Country: US (occurrence: US)
  Receive Date: 20200805
  Receipt Date: 20210326
  Transmission Date: 20210419
  Serious: Yes (Other)
  Sender: FDA-Public Use
  Company Number: US-SA-2020SA154327

PATIENT
  Age: 66 Year
  Sex: Female
  Weight: 77.1 kg

DRUGS (4)
  1. DUPIXENT [Suspect]
     Active Substance: DUPILUMAB
     Dosage: 200 MG, QOW
     Route: 058
     Dates: start: 2020, end: 202101
  2. SINGULAIR [Concomitant]
     Active Substance: MONTELUKAST SODIUM
  3. ESTRADIOL. [Concomitant]
     Active Substance: ESTRADIOL
  4. DUPIXENT [Suspect]
     Active Substance: DUPILUMAB
     Indication: ASTHMA
     Dosage: 200 MG, QOW
     Route: 058
     Dates: start: 20200513

REACTIONS (15)
  - Gingival disorder [Unknown]
  - Abdominal distension [Unknown]
  - Cough [Unknown]
  - Eating disorder [Unknown]
  - Candida infection [Recovered/Resolved]
  - Urinary tract infection [Unknown]
  - Haemorrhage subcutaneous [Unknown]
  - Cataract [Recovering/Resolving]
  - Vision blurred [Recovering/Resolving]
  - Tongue discolouration [Unknown]
  - Weight increased [Unknown]
  - Hypersensitivity [Unknown]
  - Fatigue [Recovering/Resolving]
  - Arthralgia [Recovering/Resolving]
  - Oral candidiasis [Not Recovered/Not Resolved]

NARRATIVE: CASE EVENT DATE: 2020
